FAERS Safety Report 19890364 (Version 3)
Quarter: 2022Q1

REPORT INFORMATION
  Report Type: Spontaneous
  Country: JP (occurrence: JP)
  Receive Date: 20210927
  Receipt Date: 20220126
  Transmission Date: 20220423
  Serious: Yes (Other)
  Sender: FDA-Public Use
  Company Number: JP-ELI_LILLY_AND_COMPANY-JP202102005382

PATIENT
  Age: 83 Year
  Sex: Female
  Weight: 44 kg

DRUGS (9)
  1. ADCIRCA [Suspect]
     Active Substance: TADALAFIL
     Indication: Pulmonary arterial hypertension
     Dosage: 40 MG, DAILY
     Route: 065
  2. OPSUMIT [Suspect]
     Active Substance: MACITENTAN
     Indication: Pulmonary arterial hypertension
     Dosage: 10 MG, DAILY
     Route: 048
     Dates: end: 2021
  3. UPTRAVI [Concomitant]
     Active Substance: SELEXIPAG
     Indication: Pulmonary arterial hypertension
     Dosage: 0.4 MG, DAILY
     Route: 048
     Dates: start: 20170629, end: 20170706
  4. UPTRAVI [Concomitant]
     Active Substance: SELEXIPAG
     Dosage: 0.2 MG, EVERY 8 HRS
     Route: 048
     Dates: start: 20170707, end: 20170713
  5. UPTRAVI [Concomitant]
     Active Substance: SELEXIPAG
     Dosage: 0.4 MG, BID
     Route: 048
     Dates: start: 20170714
  6. TOKISHIGYAKUKAGOSHUYUSHOKYOTO [Concomitant]
     Indication: Scleroderma
     Dosage: 7.5 MG, DAILY
     Route: 065
     Dates: end: 20180710
  7. INDAPAMIDE [Concomitant]
     Active Substance: INDAPAMIDE
     Indication: Product used for unknown indication
     Dosage: 1 MG, DAILY
     Route: 065
     Dates: end: 20180703
  8. FUROSEMIDE [Concomitant]
     Active Substance: FUROSEMIDE
     Indication: Product used for unknown indication
     Dosage: 80 MG, DAILY
     Route: 065
  9. DISOPYRAMIDE [Concomitant]
     Active Substance: DISOPYRAMIDE
     Indication: Arrhythmia
     Dosage: 100 MG, DAILY
     Route: 065

REACTIONS (2)
  - Anaemia [Recovered/Resolved]
  - Mitral valve stenosis [Recovered/Resolved]

NARRATIVE: CASE EVENT DATE: 20210705
